FAERS Safety Report 4619999-3 (Version None)
Quarter: 2005Q1

REPORT INFORMATION
  Report Type: 
  Country: None (occurrence: None)
  Receive Date: 20050324
  Receipt Date: 20050324
  Transmission Date: 20050727
  Serious: Yes (Hospitalization)
  Sender: FDA-Public Use
  Company Number: None

PATIENT
  Age: 62 Year
  Sex: Female
  Weight: 62.8 kg

DRUGS (2)
  1. OXALIPLATIN [Suspect]
     Indication: SMALL INTESTINE CARCINOMA METASTATIC
     Dosage: IV
     Route: 042
     Dates: start: 20050223
  2. CAPECITABINE 1500 MG /DAY X 14 DAYS [Suspect]
     Dosage: PO
     Route: 048
     Dates: start: 20050223

REACTIONS (1)
  - BLOOD POTASSIUM DECREASED [None]
